FAERS Safety Report 10662403 (Version 2)
Quarter: 2015Q1

REPORT INFORMATION
  Report Type: Spontaneous
  Country: US (occurrence: US)
  Receive Date: 20141218
  Receipt Date: 20150116
  Transmission Date: 20150720
  Serious: No
  Sender: FDA-Public Use
  Company Number: US-B.I. PHARMACEUTICALS,INC./RIDGEFIELD-2014-BI-60426BP

PATIENT
  Age: 66 Year
  Sex: Male
  Weight: 79.38 kg

DRUGS (2)
  1. SPIRIVA [Suspect]
     Active Substance: TIOTROPIUM BROMIDE MONOHYDRATE
     Indication: ASTHMA
     Dosage: 28 MCG
     Route: 055
     Dates: start: 2011
  2. FORADIL [Concomitant]
     Active Substance: FORMOTEROL FUMARATE
     Indication: SUPPLEMENTATION THERAPY
     Route: 065

REACTIONS (2)
  - Off label use [Not Recovered/Not Resolved]
  - Product quality issue [Unknown]

NARRATIVE: CASE EVENT DATE: 2011
